FAERS Safety Report 7519134-8 (Version None)
Quarter: 2011Q2

REPORT INFORMATION
  Report Type: 
  Country: None (occurrence: None)
  Receive Date: 20110602
  Receipt Date: 20110527
  Transmission Date: 20111010
  Serious: Yes (Life-Threatening, Other)
  Sender: FDA-Public Use
  Company Number: PHHY2011BR46707

PATIENT
  Sex: Female

DRUGS (2)
  1. ZOLEDRONIC ACID [Suspect]
     Indication: OSTEOPOROSIS
     Dosage: 5MG/100ML
     Route: 042
     Dates: start: 20110526
  2. DIOVAN HCT [Suspect]
     Dosage: 160/12.5 MG

REACTIONS (17)
  - CHEST PAIN [None]
  - MOVEMENT DISORDER [None]
  - NAUSEA [None]
  - PAIN [None]
  - TREMOR [None]
  - FEELING ABNORMAL [None]
  - FEELING COLD [None]
  - HEADACHE [None]
  - SOMNOLENCE [None]
  - VOMITING [None]
  - PYREXIA [None]
  - HYPERSENSITIVITY [None]
  - MALAISE [None]
  - SPEECH DISORDER [None]
  - PAIN IN EXTREMITY [None]
  - DIZZINESS [None]
  - POLLAKIURIA [None]
